FAERS Safety Report 7521325-7 (Version None)
Quarter: 2011Q2

REPORT INFORMATION
  Report Type: 
  Country: None (occurrence: None)
  Receive Date: 20110524
  Receipt Date: 20110519
  Transmission Date: 20111010
  Serious: Yes (Life-Threatening, Hospitalization)
  Sender: FDA-Public Use
  Company Number: 20108050

PATIENT
  Sex: Male

DRUGS (1)
  1. LIORESAL [Suspect]
     Indication: MUSCLE SPASTICITY
     Dosage: 559.2 MCG, DAILY, INTRATHECAL
     Route: 037

REACTIONS (8)
  - FEELING ABNORMAL [None]
  - RHABDOMYOLYSIS [None]
  - DEVICE MALFUNCTION [None]
  - INSOMNIA [None]
  - HYPERHIDROSIS [None]
  - POSTURING [None]
  - HYPERTONIA [None]
  - DEVICE DAMAGE [None]
